FAERS Safety Report 15953634 (Version 2)
Quarter: 2019Q1

REPORT INFORMATION
  Report Type: Spontaneous
  Country: US (occurrence: US)
  Receive Date: 20190212
  Receipt Date: 20190223
  Transmission Date: 20190417
  Serious: Yes (Other)
  Sender: FDA-Public Use
  Company Number: US-ASTRAZENECA-2019SE10412

PATIENT
  Age: 14935 Day
  Sex: Male

DRUGS (26)
  1. NEXIUM [Suspect]
     Active Substance: ESOMEPRAZOLE MAGNESIUM
     Route: 048
     Dates: start: 20170203
  2. FUROSEMIDE. [Concomitant]
     Active Substance: FUROSEMIDE
     Route: 048
     Dates: start: 20130311
  3. NIASPAN [Concomitant]
     Active Substance: NIACIN
     Route: 048
  4. TRAMADOL. [Concomitant]
     Active Substance: TRAMADOL
     Route: 048
  5. LORATADINE. [Concomitant]
     Active Substance: LORATADINE
  6. DIPHENOXYLATE-ATROPINE [Concomitant]
     Active Substance: ATROPINE\DIPHENOXYLATE
  7. NEXIUM [Suspect]
     Active Substance: ESOMEPRAZOLE MAGNESIUM
     Route: 048
  8. ATENOLOL. [Concomitant]
     Active Substance: ATENOLOL
     Route: 048
     Dates: start: 20120403
  9. LISINOPRIL. [Concomitant]
     Active Substance: LISINOPRIL
     Route: 048
     Dates: start: 20130909
  10. MULTIVITAMIN [Concomitant]
     Active Substance: VITAMINS
     Route: 048
  11. FENOFIBRATE. [Concomitant]
     Active Substance: FENOFIBRATE
  12. CLONIDINE HYDROCHLORIDE. [Concomitant]
     Active Substance: CLONIDINE HYDROCHLORIDE
     Route: 048
     Dates: start: 20120403
  13. LEVEMIR [Concomitant]
     Active Substance: INSULIN DETEMIR
     Dosage: 57 UNITS
  14. GABAPENTIN. [Concomitant]
     Active Substance: GABAPENTIN
  15. SPIRONOLACTONE. [Concomitant]
     Active Substance: SPIRONOLACTONE
  16. TEMAZEPAM. [Concomitant]
     Active Substance: TEMAZEPAM
  17. ALLOPURINOL. [Concomitant]
     Active Substance: ALLOPURINOL
     Route: 048
     Dates: start: 20120403
  18. AMBIEN [Concomitant]
     Active Substance: ZOLPIDEM TARTRATE
     Dosage: AT BEDTIME
     Route: 048
     Dates: start: 20120403
  19. NOVOLOG [Concomitant]
     Active Substance: INSULIN ASPART
  20. SIMVASTATIN. [Concomitant]
     Active Substance: SIMVASTATIN
     Route: 048
  21. SINGULAIR [Concomitant]
     Active Substance: MONTELUKAST SODIUM
     Route: 048
  22. VITAMIN B12 [Concomitant]
     Active Substance: CYANOCOBALAMIN
     Route: 048
  23. PROMETHAZINE [Concomitant]
     Active Substance: PROMETHAZINE\PROMETHAZINE HYDROCHLORIDE
  24. FLUOCINONIDE. [Concomitant]
     Active Substance: FLUOCINONIDE
  25. AMITRIPTYLINE [Concomitant]
     Active Substance: AMITRIPTYLINE
     Route: 048
     Dates: start: 20120403
  26. HUMALOG [Concomitant]
     Active Substance: INSULIN LISPRO

REACTIONS (4)
  - Renal failure [Unknown]
  - Chronic kidney disease [Unknown]
  - Rebound acid hypersecretion [Unknown]
  - Acute kidney injury [Unknown]

NARRATIVE: CASE EVENT DATE: 20110401
